FAERS Safety Report 9554954 (Version 3)
Quarter: 2013Q4

REPORT INFORMATION
  Report Type: Report from Study
  Country: AU (occurrence: AU)
  Receive Date: 20130926
  Receipt Date: 20131125
  Transmission Date: 20140711
  Serious: Yes (Other)
  Sender: FDA-Public Use
  Company Number: AU-ROCHE-1281477

PATIENT
  Age: 72 Year
  Sex: Female
  Weight: 63 kg

DRUGS (6)
  1. ACTEMRA [Suspect]
     Indication: RHEUMATOID ARTHRITIS
     Dosage: DATE OF LAST INFUSION GIVEN ON 01/MAY/2013 PRIOR TO EVENT
     Route: 042
     Dates: start: 20130204, end: 20131114
  2. ACTEMRA [Suspect]
     Route: 042
     Dates: start: 20130306
  3. ACTEMRA [Suspect]
     Route: 042
     Dates: start: 20130403
  4. ACTEMRA [Suspect]
     Route: 042
     Dates: start: 20130501
  5. METHOTREXATE [Concomitant]
     Indication: RHEUMATOID ARTHRITIS
     Route: 048
     Dates: start: 1998
  6. PREDNISOLONE [Concomitant]
     Indication: RHEUMATOID ARTHRITIS
     Route: 048
     Dates: start: 1998

REACTIONS (2)
  - Dyspnoea [Recovered/Resolved]
  - Jaundice [Recovered/Resolved]
